FAERS Safety Report 21240275 (Version 1)
Quarter: 2022Q3

REPORT INFORMATION
  Report Type: Spontaneous
  Country: US (occurrence: None)
  Receive Date: 20220819
  Receipt Date: 20220819
  Transmission Date: 20221027
  Serious: Yes (Hospitalization)
  Sender: FDA-Public Use
  Company Number: None

PATIENT
  Sex: Female

DRUGS (1)
  1. ICATIBANT ACETATE [Suspect]
     Active Substance: ICATIBANT ACETATE
     Indication: Complement deficiency disease
     Dosage: 30MG AS NEEDED UNDER THE SKIN
     Route: 058
     Dates: start: 20191217

REACTIONS (3)
  - Respiratory tract oedema [None]
  - Laryngeal oedema [None]
  - Pharyngeal swelling [None]
